FAERS Safety Report 8943842 (Version 1)
Quarter: 2012Q4

REPORT INFORMATION
  Report Type: 
  Country: US (occurrence: US)
  Receive Date: 20121204
  Receipt Date: 20121204
  Transmission Date: 20130627
  Serious: Yes (Hospitalization)
  Sender: FDA-Public Use
  Company Number: PHEH2012US023149

PATIENT
  Age: 80 Year
  Sex: Female

DRUGS (1)
  1. EXJADE [Suspect]
     Indication: MYELODYSPLASTIC SYNDROME
     Dosage: 1125 mg,Daily
     Route: 048
     Dates: start: 20120812, end: 201211

REACTIONS (2)
  - Renal pain [Not Recovered/Not Resolved]
  - Abdominal pain [Not Recovered/Not Resolved]
